FAERS Safety Report 20072075 (Version 2)
Quarter: 2021Q4

REPORT INFORMATION
  Report Type: Report from Study
  Country: US (occurrence: US)
  Receive Date: 20211116
  Receipt Date: 20211221
  Transmission Date: 20220303
  Serious: Yes (Other)
  Sender: FDA-Public Use
  Company Number: US-NOVARTISTESTPH-NVSC2021US253823

PATIENT
  Sex: Male

DRUGS (1)
  1. KESIMPTA [Suspect]
     Active Substance: OFATUMUMAB
     Indication: Relapsing multiple sclerosis
     Dosage: UNK UNK, QMO
     Route: 058
     Dates: start: 202011

REACTIONS (6)
  - Multiple sclerosis relapse [Unknown]
  - Dysarthria [Unknown]
  - Anxiety [Unknown]
  - Tremor [Unknown]
  - Temperature intolerance [Unknown]
  - Feeling abnormal [Unknown]
